FAERS Safety Report 24457622 (Version 1)
Quarter: 2024Q4

REPORT INFORMATION
  Report Type: Spontaneous
  Country: JP (occurrence: JP)
  Receive Date: 20241018
  Receipt Date: 20241018
  Transmission Date: 20250114
  Serious: Yes (Other)
  Sender: ROCHE
  Company Number: JP-CHEPLA-2024012853

PATIENT

DRUGS (1)
  1. VALGANCICLOVIR HYDROCHLORIDE [Suspect]
     Active Substance: VALGANCICLOVIR HYDROCHLORIDE
     Indication: Product used for unknown indication
     Route: 048

REACTIONS (3)
  - Cytomegalovirus viraemia [Unknown]
  - Neutropenia [Unknown]
  - Cytomegalovirus syndrome [Unknown]
